FAERS Safety Report 15339024 (Version 1)
Quarter: 2018Q3

REPORT INFORMATION
  Report Type: Spontaneous
  Country: US (occurrence: US)
  Receive Date: 20180827
  Receipt Date: 20180827
  Transmission Date: 20181010
  Serious: Yes (Hospitalization)
  Sender: FDA-Public Use
  Company Number: None

PATIENT
  Age: 70 Year
  Sex: Male

DRUGS (2)
  1. FUROSEMIDE. [Suspect]
     Active Substance: FUROSEMIDE
     Indication: HYPOTENSION
     Dates: start: 20180421, end: 20180421
  2. HYDROCHLOROTHIAZIDE. [Suspect]
     Active Substance: HYDROCHLOROTHIAZIDE
     Indication: ACUTE KIDNEY INJURY
     Dates: start: 20180421, end: 20180421

REACTIONS (10)
  - Hypokalaemia [None]
  - Hypotension [None]
  - Presyncope [None]
  - Tremor [None]
  - Drug level increased [None]
  - Hypovolaemia [None]
  - Fall [None]
  - Somatic symptom disorder [None]
  - Acute kidney injury [None]
  - Leukocytosis [None]

NARRATIVE: CASE EVENT DATE: 20180424
